FAERS Safety Report 6537677-0 (Version None)
Quarter: 2010Q1

REPORT INFORMATION
  Report Type: 
  Country: None (occurrence: None)
  Receive Date: 20100107
  Receipt Date: 20081224
  Transmission Date: 20100710
  Serious: Yes (Death, Life-Threatening, Disabling, Other)
  Sender: FDA-Public Use
  Company Number: WAES 0805FRA00045

PATIENT
  Age: 60 Year
  Sex: Male

DRUGS (9)
  1. JANUVIA [Suspect]
     Indication: TYPE 2 DIABETES MELLITUS
     Dosage: 100 MG/DAILY PO
     Route: 048
     Dates: start: 20080322, end: 20080517
  2. ATORVASTATIN CALCIUM [Concomitant]
  3. CICLETANINE HCL [Concomitant]
  4. DIGOXIN [Concomitant]
  5. FLUINDIONE [Concomitant]
  6. IRBESARTAN [Concomitant]
  7. METFORMIN HCL [Concomitant]
  8. NICORANDIL [Concomitant]
  9. VERAPAMIL HCL [Concomitant]

REACTIONS (7)
  - ACUTE MYOCARDIAL INFARCTION [None]
  - ANGINA UNSTABLE [None]
  - ATRIAL FIBRILLATION [None]
  - CARDIAC DEATH [None]
  - CORONARY ARTERY INSUFFICIENCY [None]
  - GLYCOSYLATED HAEMOGLOBIN INCREASED [None]
  - VENTRICULAR FIBRILLATION [None]
